FAERS Safety Report 12743271 (Version 2)
Quarter: 2016Q4

REPORT INFORMATION
  Report Type: Spontaneous
  Country: US (occurrence: US)
  Receive Date: 20160914
  Receipt Date: 20161019
  Transmission Date: 20170207
  Serious: No
  Sender: FDA-Public Use
  Company Number: US-BEH-2016073448

PATIENT
  Sex: Female
  Weight: 60.32 kg

DRUGS (16)
  1. FIRAZYR [Concomitant]
     Active Substance: ICATIBANT ACETATE
  2. RUCONEST [Concomitant]
     Active Substance: HUMAN C1-ESTERASE INHIBITOR
  3. PROMETHAZINE [Concomitant]
     Active Substance: PROMETHAZINE\PROMETHAZINE HYDROCHLORIDE
  4. WATER FOR INJECTIO [Concomitant]
  5. BERINERT [Suspect]
     Active Substance: HUMAN C1-ESTERASE INHIBITOR
     Indication: HEREDITARY ANGIOEDEMA
     Dosage: 1000 IU, PRN
     Route: 042
     Dates: start: 20160616
  6. HEPARIN [Concomitant]
     Active Substance: HEPARIN SODIUM
  7. HYDROMORPHONE [Concomitant]
     Active Substance: HYDROMORPHONE
  8. EPIPEN [Concomitant]
     Active Substance: EPINEPHRINE
  9. AMLODIPINE [Concomitant]
     Active Substance: AMLODIPINE BESYLATE
  10. PRILOCAINE [Concomitant]
     Active Substance: PRILOCAINE
  11. SODIUM CHLORIDE. [Concomitant]
     Active Substance: SODIUM CHLORIDE
  12. HYDROCHLOROTHIAZIDE. [Concomitant]
     Active Substance: HYDROCHLOROTHIAZIDE
  13. CINRYZE [Concomitant]
     Active Substance: HUMAN C1-ESTERASE INHIBITOR
  14. DIPHENHYDRAMINE. [Concomitant]
     Active Substance: DIPHENHYDRAMINE
  15. LIDOCAINE. [Concomitant]
     Active Substance: LIDOCAINE
  16. CLONAZEPAM. [Concomitant]
     Active Substance: CLONAZEPAM

REACTIONS (1)
  - Gastric disorder [Unknown]
